FAERS Safety Report 9682442 (Version 1)
Quarter: 2013Q4

REPORT INFORMATION
  Report Type: Spontaneous
  Country: US (occurrence: US)
  Receive Date: 20131112
  Receipt Date: 20131112
  Transmission Date: 20140711
  Serious: Yes (Hospitalization, Other)
  Sender: FDA-Public Use
  Company Number: US-AMGEN-USASP2013078763

PATIENT
  Age: 84 Year
  Sex: Male

DRUGS (1)
  1. XGEVA [Suspect]
     Indication: PROSTATE CANCER METASTATIC
     Route: 065

REACTIONS (5)
  - Rectal haemorrhage [Unknown]
  - Cardiac failure congestive [Unknown]
  - Wheezing [Unknown]
  - Cough [Unknown]
  - Dyspnoea [Unknown]
